FAERS Safety Report 11226196 (Version 1)
Quarter: 2015Q2

REPORT INFORMATION
  Report Type: Spontaneous
  Country: BE (occurrence: BE)
  Receive Date: 20150629
  Receipt Date: 20150629
  Transmission Date: 20150821
  Serious: Yes (Other)
  Sender: FDA-Public Use
  Company Number: BE-BAYER-2015-363275

PATIENT
  Sex: Male
  Weight: 3.6 kg

DRUGS (4)
  1. GLIBENCLAMIDE [Suspect]
     Active Substance: GLYBURIDE
  2. NIFEDIPINE. [Suspect]
     Active Substance: NIFEDIPINE
  3. BETAMETHASON [BETAMETHASONE VALERATE] [Concomitant]
  4. ATOSIBAN [Concomitant]
     Active Substance: ATOSIBAN

REACTIONS (4)
  - Macrosomia [None]
  - Hypoglycaemia neonatal [None]
  - Foetal exposure during pregnancy [None]
  - Premature baby [None]
